FAERS Safety Report 5402889-6 (Version None)
Quarter: 2007Q3

REPORT INFORMATION
  Report Type: 
  Country: None (occurrence: None)
  Receive Date: 20070801
  Receipt Date: 20070720
  Transmission Date: 20080115
  Serious: Yes (Other)
  Sender: FDA-Public Use
  Company Number: GB-JNJFOC-20070706536

PATIENT
  Age: 55 Year
  Sex: Male

DRUGS (15)
  1. TRAMADOL HCL [Suspect]
     Route: 048
  2. TRAMADOL HCL [Suspect]
     Indication: PAIN
     Route: 048
  3. WARFARIN SODIUM [Suspect]
     Route: 048
  4. WARFARIN SODIUM [Suspect]
     Indication: ATRIAL FIBRILLATION
     Route: 048
  5. BACLOFEN [Concomitant]
     Route: 065
  6. CODEINE PHOSPHATE AND ACETAMINOPHEN [Concomitant]
     Route: 065
  7. DIGOXIN [Concomitant]
     Route: 065
  8. FLUOXETINE [Concomitant]
     Route: 065
  9. FUROSEMIDE [Concomitant]
     Route: 065
  10. GABAPENTIN [Concomitant]
     Route: 065
  11. METOPROLOL SUCCINATE [Concomitant]
     Route: 065
  12. OMEPRAZOLE [Concomitant]
     Route: 065
  13. SPIRONOLACTONE [Concomitant]
     Route: 065
  14. THIAMINE HCL [Concomitant]
     Route: 065
  15. TRAZODONE HCL [Concomitant]
     Route: 065

REACTIONS (1)
  - INTERNATIONAL NORMALISED RATIO INCREASED [None]
